FAERS Safety Report 10206714 (Version 2)
Quarter: 2014Q2

REPORT INFORMATION
  Report Type: Report from Study
  Country: US (occurrence: US)
  Receive Date: 20140530
  Receipt Date: 20140530
  Transmission Date: 20141212
  Serious: Yes (Death, Hospitalization)
  Sender: FDA-Public Use
  Company Number: US-CELGENEUS-163-21880-12023085

PATIENT
  Age: 64 Year
  Sex: 0

DRUGS (3)
  1. REVLIMID [Suspect]
     Indication: PLASMA CELL MYELOMA
     Dosage: 25 MILLIGRAM
     Route: 048
     Dates: start: 20110601, end: 20110718
  2. VELCADE [Suspect]
     Indication: PLASMA CELL MYELOMA
     Dosage: 1.6 MG/M2
     Route: 041
     Dates: start: 20110521, end: 20110718
  3. DECADRON [Suspect]
     Indication: PLASMA CELL MYELOMA
     Route: 041
     Dates: start: 20110521, end: 20110718

REACTIONS (3)
  - Sepsis [Fatal]
  - Urosepsis [Unknown]
  - Neutropenia [Unknown]
